FAERS Safety Report 19144265 (Version 2)
Quarter: 2022Q3

REPORT INFORMATION
  Report Type: Spontaneous
  Country: JP (occurrence: JP)
  Receive Date: 20210416
  Receipt Date: 20220714
  Transmission Date: 20221027
  Serious: Yes (Other)
  Sender: FDA-Public Use
  Company Number: JP-GSKNCCC-CASE-01188569_AE-43167

PATIENT

DRUGS (4)
  1. SUMATRIPTAN [Suspect]
     Active Substance: SUMATRIPTAN
     Indication: Migraine
     Dosage: UNK
     Route: 058
     Dates: start: 2019
  2. SUMATRIPTAN [Suspect]
     Active Substance: SUMATRIPTAN
     Indication: Cluster headache
  3. SUMATRIPTAN SUCCINATE [Suspect]
     Active Substance: SUMATRIPTAN SUCCINATE
     Indication: Migraine
     Dosage: UNK
     Route: 048
     Dates: start: 2019
  4. SUMATRIPTAN SUCCINATE [Suspect]
     Active Substance: SUMATRIPTAN SUCCINATE
     Indication: Cluster headache

REACTIONS (5)
  - Malaise [Recovered/Resolved]
  - Discomfort [Recovered/Resolved]
  - Hyperlipidaemia [Unknown]
  - Depressed mood [Unknown]
  - Schizophrenia [Unknown]

NARRATIVE: CASE EVENT DATE: 20190101
